FAERS Safety Report 10404115 (Version 1)
Quarter: 2014Q1

REPORT INFORMATION
  Report Type: Spontaneous
  Country: US (occurrence: None)
  Receive Date: 20130909
  Receipt Date: 20130909
  Transmission Date: 20141002
  Serious: Yes (Other)
  Sender: FDA-Public Use
  Company Number: 380490

PATIENT
  Age: 62 Year
  Sex: Male
  Weight: 129.3 kg

DRUGS (3)
  1. VICTOZA (IRAGLUTIDE) SOLUTION FOR INJECTION, 6MG/ML [Suspect]
     Indication: TYPE 2 DIABETES MELLITUS
     Route: 058
     Dates: start: 201103, end: 20120206
  2. VICTOZA (IRAGLUTIDE) SOLUTION FOR INJECTION, 6MG/ML [Suspect]
     Indication: WEIGHT DECREASED
     Route: 058
     Dates: start: 201103, end: 20120206
  3. METFORMIN [Concomitant]

REACTIONS (2)
  - Pancreatitis [None]
  - Off label use [None]
